FAERS Safety Report 7747948-8 (Version None)
Quarter: 2011Q3

REPORT INFORMATION
  Report Type: 
  Country: None (occurrence: None)
  Receive Date: 20110913
  Receipt Date: 20110712
  Transmission Date: 20111222
  Serious: No
  Sender: FDA-Public Use
  Company Number: US-ALLERGAN-1109393US

PATIENT
  Age: 48 Year
  Sex: Female

DRUGS (1)
  1. LATISSE [Suspect]
     Indication: GROWTH OF EYELASHES
     Dosage: 1 GTT, QHS
     Route: 061

REACTIONS (4)
  - EYELID IRRITATION [None]
  - EYE IRRITATION [None]
  - OCULAR HYPERAEMIA [None]
  - ERYTHEMA OF EYELID [None]
